FAERS Safety Report 7074299-X (Version None)
Quarter: 2010Q4

REPORT INFORMATION
  Report Type: 
  Country: None (occurrence: None)
  Receive Date: 20101029
  Receipt Date: 20101019
  Transmission Date: 20110411
  Serious: Yes (Death, Life-Threatening, Hospitalization)
  Sender: FDA-Public Use
  Company Number: JP-PFIZER INC-2010121123

PATIENT
  Age: 61 Year
  Sex: Female

DRUGS (10)
  1. FARMORUBICIN [Suspect]
     Indication: BREAST CANCER
     Dosage: 60 MG, UNK
     Route: 042
     Dates: start: 20010201, end: 20011001
  2. ADRIACIN [Suspect]
     Indication: BREAST CANCER
     Dosage: 60 MG, UNK
     Route: 042
     Dates: start: 20001001, end: 20010101
  3. ENDOXAN [Suspect]
     Indication: BREAST CANCER
     Dosage: 700 MG
     Route: 042
     Dates: start: 20010201, end: 20011001
  4. ENDOXAN [Suspect]
     Dosage: UNK
     Route: 048
     Dates: start: 20011016, end: 20050725
  5. FLUOROURACIL [Concomitant]
     Indication: BREAST CANCER
     Dosage: UNK MG, UNK
  6. FURTULON [Concomitant]
     Indication: BREAST CANCER
     Dosage: UNK
     Route: 048
     Dates: start: 20011016, end: 20070725
  7. PACLITAXEL [Concomitant]
     Indication: BREAST CANCER
  8. MEDROXYPROGESTERONE ACETATE [Concomitant]
     Dosage: UNK
     Route: 048
     Dates: start: 20011016, end: 20050725
  9. UFT [Concomitant]
     Indication: BREAST CANCER
     Dosage: 400 MG, UNK
     Route: 048
     Dates: start: 20010201, end: 20011001
  10. TAXOTERE [Concomitant]
     Dosage: 90 MG, UNK
     Route: 042
     Dates: start: 20001001, end: 20010101

REACTIONS (8)
  - ACUTE MYELOID LEUKAEMIA [None]
  - CEREBRAL INFARCTION [None]
  - ENCEPHALITIS [None]
  - GRAFT VERSUS HOST DISEASE [None]
  - NEOPLASM MALIGNANT [None]
  - NEOPLASM RECURRENCE [None]
  - PNEUMONIA [None]
  - RESPIRATORY FAILURE [None]
